FAERS Safety Report 23663019 (Version 1)
Quarter: 2024Q1

REPORT INFORMATION
  Report Type: Spontaneous
  Country: GB (occurrence: GB)
  Receive Date: 20240322
  Receipt Date: 20240322
  Transmission Date: 20240410
  Serious: Yes (Other)
  Sender: FDA-Public Use
  Company Number: None

PATIENT
  Age: 59 Year
  Sex: Female
  Weight: 80 kg

DRUGS (2)
  1. DULOXETINE HYDROCHLORIDE [Suspect]
     Active Substance: DULOXETINE HYDROCHLORIDE
     Indication: Bipolar disorder
     Dosage: UNK UNK, UNKNOWN
     Route: 065
     Dates: start: 20240220, end: 20240304
  2. LITHIUM [Concomitant]
     Active Substance: LITHIUM
     Indication: Product used for unknown indication
     Dosage: UNK
     Dates: start: 20110503

REACTIONS (2)
  - Muscle disorder [Recovered/Resolved]
  - Abdominal pain [Recovering/Resolving]

NARRATIVE: CASE EVENT DATE: 20240301
